FAERS Safety Report 5772221-7 (Version None)
Quarter: 2008Q2

REPORT INFORMATION
  Report Type: 
  Country: None (occurrence: None)
  Receive Date: 20080610
  Receipt Date: 20080603
  Transmission Date: 20081010
  Serious: Yes (Hospitalization, Disabling)
  Sender: FDA-Public Use
  Company Number: 2008AL006250

PATIENT
  Sex: Female

DRUGS (1)
  1. PHENYTOIN [Suspect]
     Indication: CONVULSION
     Dates: start: 20020501

REACTIONS (12)
  - ANXIETY [None]
  - ASTHENIA [None]
  - CONVULSION [None]
  - EMOTIONAL DISTRESS [None]
  - EYE INJURY [None]
  - EYE IRRITATION [None]
  - FEAR [None]
  - INJURY [None]
  - PAIN [None]
  - SKIN DISCOLOURATION [None]
  - STEVENS-JOHNSON SYNDROME [None]
  - VISUAL ACUITY REDUCED [None]
